FAERS Safety Report 12477417 (Version 3)
Quarter: 2018Q1

REPORT INFORMATION
  Report Type: Spontaneous
  Country: ES (occurrence: ES)
  Receive Date: 20160617
  Receipt Date: 20180313
  Transmission Date: 20180508
  Serious: Yes (Hospitalization, Other)
  Sender: FDA-Public Use
  Company Number: ES-TEVA-668931ISR

PATIENT
  Age: 49 Year
  Sex: Male

DRUGS (2)
  1. IBUPROFEN. [Suspect]
     Active Substance: IBUPROFEN
     Indication: HAEMOPTYSIS
     Dosage: APPROXIMATELY 10 G A DAY
     Route: 048
  2. IBUPROFEN. [Suspect]
     Active Substance: IBUPROFEN
     Indication: BACK PAIN
     Dosage: APPROXIMATELY 10 G A DAY
     Route: 048

REACTIONS (3)
  - Drug abuse [Recovered/Resolved]
  - Acute kidney injury [Recovered/Resolved]
  - Diffuse alveolar damage [Recovered/Resolved]
